FAERS Safety Report 15525627 (Version 2)
Quarter: 2018Q4

REPORT INFORMATION
  Report Type: Report from Study
  Country: US (occurrence: US)
  Receive Date: 20181018
  Receipt Date: 20181107
  Transmission Date: 20190205
  Serious: Yes (Other)
  Sender: FDA-Public Use
  Company Number: US-GILEAD-2018-0369125

PATIENT
  Age: 16 Year
  Sex: Male

DRUGS (4)
  1. ORENITRAM [Suspect]
     Active Substance: TREPROSTINIL
     Indication: PULMONARY ARTERIAL HYPERTENSION
     Dosage: 1.25 MG, TID
     Route: 065
  2. TYVASO [Suspect]
     Active Substance: TREPROSTINIL
     Indication: PULMONARY ARTERIAL HYPERTENSION
     Dosage: UNK UNK, TID
     Route: 065
     Dates: start: 2016
  3. AMBRISENTAN [Suspect]
     Active Substance: AMBRISENTAN
     Indication: PULMONARY ARTERIAL HYPERTENSION
     Dosage: 10 MG, UNK
     Route: 065
     Dates: start: 201803
  4. INSULIN [Concomitant]
     Active Substance: INSULIN NOS

REACTIONS (4)
  - Fatigue [Not Recovered/Not Resolved]
  - Flatulence [Not Recovered/Not Resolved]
  - Type 1 diabetes mellitus [Not Recovered/Not Resolved]
  - Off label use [Not Recovered/Not Resolved]

NARRATIVE: CASE EVENT DATE: 20181031
